FAERS Safety Report 8854077 (Version 1)
Quarter: 2012Q4

REPORT INFORMATION
  Report Type: 
  Country: US (occurrence: US)
  Receive Date: 20121022
  Receipt Date: 20121022
  Transmission Date: 20130627
  Serious: Yes (Hospitalization)
  Sender: FDA-Public Use
  Company Number: US-JNJFOC-20121009121

PATIENT
  Age: 70 None
  Sex: Male
  Weight: 68.49 kg

DRUGS (8)
  1. XARELTO [Suspect]
     Indication: HEART RATE IRREGULAR
     Route: 048
     Dates: start: 201112, end: 20121004
  2. XARELTO [Suspect]
     Indication: HEART RATE IRREGULAR
     Route: 048
     Dates: start: 20121005
  3. XARELTO [Suspect]
     Indication: CEREBROVASCULAR ACCIDENT PROPHYLAXIS
     Route: 048
     Dates: start: 201112, end: 20121004
  4. XARELTO [Suspect]
     Indication: CEREBROVASCULAR ACCIDENT PROPHYLAXIS
     Route: 048
     Dates: start: 20121005
  5. LIVALO [Concomitant]
     Indication: BLOOD CHOLESTEROL
     Route: 048
  6. BYSTOLIC [Concomitant]
     Indication: BLOOD PRESSURE
     Route: 048
  7. PEPCID [Concomitant]
     Indication: GASTROOESOPHAGEAL REFLUX DISEASE
     Route: 048
  8. LORTAB [Concomitant]
     Indication: TINNITUS
     Route: 048

REACTIONS (4)
  - Haemoptysis [Not Recovered/Not Resolved]
  - Gingival bleeding [Not Recovered/Not Resolved]
  - Wrong technique in drug usage process [Not Recovered/Not Resolved]
  - Mouth haemorrhage [Not Recovered/Not Resolved]
